FAERS Safety Report 4575645-9 (Version None)
Quarter: 2005Q1

REPORT INFORMATION
  Report Type: 
  Country: None (occurrence: None)
  Receive Date: 20050209
  Receipt Date: 20050128
  Transmission Date: 20050727
  Serious: Yes (Hospitalization)
  Sender: FDA-Public Use
  Company Number: AU-GLAXOSMITHKLINE-B0370173A

PATIENT
  Age: 41 Year
  Sex: Female

DRUGS (3)
  1. IMIGRAN [Suspect]
     Indication: ILL-DEFINED DISORDER
     Dosage: 200MG MONTHLY
     Route: 048
     Dates: start: 19950101
  2. PULMICORT [Suspect]
     Indication: ILL-DEFINED DISORDER
     Dosage: 800MG PER DAY
     Route: 055
  3. VENTOLIN [Suspect]
     Indication: ILL-DEFINED DISORDER
     Dosage: 2U PER DAY
     Route: 055

REACTIONS (3)
  - CHEST PAIN [None]
  - FLUSHING [None]
  - HYPERHIDROSIS [None]
